FAERS Safety Report 5237331-1 (Version None)
Quarter: 2007Q1

REPORT INFORMATION
  Report Type: 
  Country: None (occurrence: None)
  Receive Date: 20070213
  Receipt Date: 20070130
  Transmission Date: 20070707
  Serious: Yes (Other)
  Sender: FDA-Public Use
  Company Number: DE-ELI_LILLY_AND_COMPANY-DE200701003336

PATIENT

DRUGS (1)
  1. STRATTERA [Suspect]
     Route: 048

REACTIONS (1)
  - CEREBROVASCULAR DISORDER [None]
